FAERS Safety Report 6749905-7 (Version None)
Quarter: 2010Q2

REPORT INFORMATION
  Report Type: 
  Country: None (occurrence: None)
  Receive Date: 20100601
  Receipt Date: 20100526
  Transmission Date: 20101027
  Serious: Yes (Hospitalization)
  Sender: FDA-Public Use
  Company Number: US-BRISTOL-MYERS SQUIBB COMPANY-15123441

PATIENT
  Age: 58 Year
  Sex: Male
  Weight: 54 kg

DRUGS (4)
  1. ERBITUX [Suspect]
     Indication: OESOPHAGEAL CARCINOMA
     Dosage: CETUXIMAB, INI 400 MG/M2 IV INFUSION OVER 120 MINUTES, FOLLOWED BY WEEKLYY INFUSION OF 250MG/M2
     Route: 042
     Dates: start: 20100323, end: 20100511
  2. TAXOL [Suspect]
     Indication: OESOPHAGEAL CARCINOMA
     Dosage: PACLITAXCL, 5OMG/M2, IV INFUSION OVER 1 HOUR WEEKLY ON DAY 1,8, 15,22,29 AND 36.
     Route: 042
     Dates: start: 20100323, end: 20100511
  3. CISPLATIN [Suspect]
     Indication: OESOPHAGEAL CARCINOMA
     Dosage: CISPLATIN, 25MG/M2, IV INFUSION OVER 30-60 MINUTES WEEKLY ON DAY 1,8, 15, 22,29 AND 36.
     Route: 042
     Dates: start: 20100323, end: 20100511
  4. RADIATION THERAPY [Suspect]
     Indication: OESOPHAGEAL CARCINOMA
     Dosage: 1DF-5040GY.NO OF FRACIONS:28,ELASPSED DAYS-49,RADIATION,  50.4 GY, AT 180 CGY/FX FOR 6 CYCLES/5D
     Dates: start: 20100323, end: 20100510

REACTIONS (11)
  - DECREASED APPETITE [None]
  - DEHYDRATION [None]
  - ENTERITIS INFECTIOUS [None]
  - HYPOKALAEMIA [None]
  - HYPOPHOSPHATAEMIA [None]
  - LYMPHOPENIA [None]
  - NAUSEA [None]
  - NEUTROPHIL COUNT DECREASED [None]
  - SINUS TACHYCARDIA [None]
  - VOMITING [None]
  - WHITE BLOOD CELL COUNT DECREASED [None]
